FAERS Safety Report 5141229-7 (Version None)
Quarter: 2006Q4

REPORT INFORMATION
  Report Type: 
  Country: None (occurrence: None)
  Receive Date: 20061101
  Receipt Date: 20061019
  Transmission Date: 20070319
  Serious: Yes (Hospitalization, Disabling, Other)
  Sender: FDA-Public Use
  Company Number: US-ELI_LILLY_AND_COMPANY-US200610003455

PATIENT
  Sex: Female

DRUGS (1)
  1. HUMATROPE [Suspect]
     Indication: PITUITARY TUMOUR
     Dates: start: 20040101

REACTIONS (5)
  - CEREBROVASCULAR ACCIDENT [None]
  - HEMIPLEGIA [None]
  - MOVEMENT DISORDER [None]
  - PHARMACEUTICAL PRODUCT COMPLAINT [None]
  - SPEECH DISORDER [None]
